FAERS Safety Report 5337980-6 (Version None)
Quarter: 2007Q2

REPORT INFORMATION
  Report Type: 
  Country: None (occurrence: None)
  Receive Date: 20070530
  Receipt Date: 20070517
  Transmission Date: 20071010
  Serious: Yes (Hospitalization, Other)
  Sender: FDA-Public Use
  Company Number: PHEH2007US04715

PATIENT
  Age: 63 Year
  Sex: Female

DRUGS (10)
  1. ZELNORM [Suspect]
     Indication: IRRITABLE BOWEL SYNDROME
     Dosage: 6 MG, BID
     Route: 048
     Dates: start: 20050925, end: 20060409
  2. LIBRAX [Concomitant]
     Indication: IRRITABLE BOWEL SYNDROME
  3. NEXIUM [Concomitant]
     Indication: GASTROOESOPHAGEAL REFLUX DISEASE
  4. URECHOLINE [Concomitant]
  5. TOPROL-XL [Concomitant]
     Indication: HYPERTENSION
  6. LIPITOR [Concomitant]
  7. ASPIRIN [Concomitant]
  8. ELAVIL [Concomitant]
     Indication: ANXIETY
  9. MECLIZINE [Concomitant]
     Indication: VERTIGO
     Route: 048
  10. ZANAFLEX [Concomitant]

REACTIONS (9)
  - AORTIC VALVE REPLACEMENT [None]
  - BREAST CANCER [None]
  - CORONARY ARTERY BYPASS [None]
  - DYSPNOEA [None]
  - FALL [None]
  - HYPERTENSION [None]
  - HYPOTONIA [None]
  - MASTECTOMY [None]
  - TACHYCARDIA [None]
